FAERS Safety Report 4987283-4 (Version None)
Quarter: 2006Q2

REPORT INFORMATION
  Report Type: 
  Country: None (occurrence: None)
  Receive Date: 20060501
  Receipt Date: 20051123
  Transmission Date: 20061013
  Serious: Yes (Hospitalization, Disabling)
  Sender: FDA-Public Use
  Company Number: US-MERCK-0511USA04370

PATIENT
  Age: 66 Year
  Sex: Male
  Weight: 64 kg

DRUGS (4)
  1. VIOXX [Suspect]
     Indication: ARTHRITIS
     Route: 048
     Dates: start: 20010201, end: 20031019
  2. LOVASTATIN [Concomitant]
     Route: 065
     Dates: start: 20030801
  3. ATIVAN [Concomitant]
     Route: 065
  4. HYDRODIURIL [Concomitant]
     Indication: HYPERTENSION
     Route: 048
     Dates: start: 20030201

REACTIONS (6)
  - BACK PAIN [None]
  - CARPAL TUNNEL SYNDROME [None]
  - DEPRESSION [None]
  - GASTROOESOPHAGEAL REFLUX DISEASE [None]
  - JOINT INJURY [None]
  - MYOCARDIAL INFARCTION [None]
